FAERS Safety Report 7296106-2 (Version None)
Quarter: 2011Q1

REPORT INFORMATION
  Report Type: 
  Country: None (occurrence: None)
  Receive Date: 20110216
  Receipt Date: 20110208
  Transmission Date: 20110831
  Serious: Yes (Life-Threatening, Other)
  Sender: FDA-Public Use
  Company Number: JP-ROCHE-749321

PATIENT
  Sex: Male
  Weight: 80 kg

DRUGS (7)
  1. FLUOROURACIL [Concomitant]
     Dosage: DOSAGE IS UNCERTAIN.
     Route: 040
  2. LEVOFOLINATE [Concomitant]
     Dosage: DOSAGE IS UNCERTAIN.
     Route: 041
  3. ELPLAT [Concomitant]
     Dosage: DOSAGE IS UNCERTAIN.
     Route: 041
  4. LEVOFOLINATE [Concomitant]
     Dosage: DOSAGE IS UNCERTAIN.
     Route: 041
  5. AVASTIN [Suspect]
     Indication: RECTAL CANCER METASTATIC
     Dosage: DOSAGE IS UNCERTAIN.
     Route: 041
     Dates: start: 20070101, end: 20100101
  6. IRINOTECAN HYDROCHLORIDE [Concomitant]
     Route: 041
  7. FLUOROURACIL [Concomitant]
     Dosage: DOSAGE IS UNCERTAIN.
     Route: 040

REACTIONS (2)
  - CEREBRAL INFARCTION [None]
  - CAROTID ARTERY OCCLUSION [None]
